FAERS Safety Report 5631804-5 (Version None)
Quarter: 2008Q1

REPORT INFORMATION
  Report Type: 
  Country: None (occurrence: None)
  Receive Date: 20080213
  Receipt Date: 20080131
  Transmission Date: 20080703
  Serious: Yes (Life-Threatening, Hospitalization)
  Sender: FDA-Public Use
  Company Number: 2008S1001753

PATIENT
  Age: 68 Year
  Sex: Male

DRUGS (5)
  1. METFORMIN HCL [Suspect]
     Indication: DRUG USE FOR UNKNOWN INDICATION
     Dosage: 1 G; 3 TIMES A DAY; ORAL
     Route: 048
  2. ASPIRIN [Concomitant]
  3. ATORVASTATIN CALCIUM [Concomitant]
  4. ROSIGLITAZONE [Concomitant]
  5. SPIRONOLACTONE [Concomitant]

REACTIONS (4)
  - DIARRHOEA [None]
  - DYSURIA [None]
  - LACTIC ACIDOSIS [None]
  - VOMITING [None]
